FAERS Safety Report 5962103-X (Version None)
Quarter: 2008Q4

REPORT INFORMATION
  Report Type: 
  Country: None (occurrence: None)
  Receive Date: 20081121
  Receipt Date: 20081112
  Transmission Date: 20090506
  Serious: Yes (Other)
  Sender: FDA-Public Use
  Company Number: PHHY2008JP26740

PATIENT
  Sex: Female

DRUGS (6)
  1. DIOVAN [Suspect]
     Indication: HYPERTENSION
     Dosage: 80 MG, QD
     Route: 048
     Dates: start: 20080725
  2. ALFAROL [Concomitant]
     Dosage: 1 UG
     Route: 048
     Dates: start: 20060708
  3. ACTONEL [Concomitant]
     Dosage: 2.5 MG
     Route: 048
     Dates: start: 20060708
  4. ALESION [Concomitant]
     Dosage: 20 MG
     Route: 048
     Dates: start: 20060524
  5. SINGULAIR [Concomitant]
     Dosage: 10 MG
     Route: 048
     Dates: start: 20080411
  6. FERROMIA [Concomitant]
     Dosage: 50 MG
     Route: 048
     Dates: start: 20080919

REACTIONS (3)
  - CARCINOEMBRYONIC ANTIGEN INCREASED [None]
  - LARGE INTESTINE CARCINOMA [None]
  - SURGERY [None]
